FAERS Safety Report 16900589 (Version 1)
Quarter: 2019Q4

REPORT INFORMATION
  Report Type: Spontaneous
  Country: US (occurrence: US)
  Receive Date: 20191009
  Receipt Date: 20191009
  Transmission Date: 20200122
  Serious: No
  Sender: FDA-Public Use
  Company Number: US-GALDERMA-US19037625

PATIENT
  Age: 34 Year
  Sex: Female

DRUGS (4)
  1. SKINCEUTICALS SUNSCREEN [Concomitant]
     Indication: PROPHYLAXIS AGAINST SOLAR RADIATION
     Route: 065
  2. TRI-LUMA [Suspect]
     Active Substance: FLUOCINOLONE ACETONIDE\HYDROQUINONE\TRETINOIN
     Indication: CHLOASMA
     Route: 061
     Dates: start: 20190621, end: 20190624
  3. CETAPHIL DAILY FACIAL CLEANSER [Suspect]
     Active Substance: COSMETICS
     Indication: PRODUCT USED FOR UNKNOWN INDICATION
     Route: 065
  4. OIL OF OLAY SENSITIVE PLUS MOISTURIZER [Concomitant]
     Indication: PROPHYLAXIS
     Route: 065

REACTIONS (8)
  - Skin exfoliation [Not Recovered/Not Resolved]
  - Skin burning sensation [Not Recovered/Not Resolved]
  - Blister [Not Recovered/Not Resolved]
  - Pain of skin [Not Recovered/Not Resolved]
  - Pruritus [Not Recovered/Not Resolved]
  - Lip swelling [Not Recovered/Not Resolved]
  - Rash papular [Not Recovered/Not Resolved]
  - Skin swelling [Not Recovered/Not Resolved]

NARRATIVE: CASE EVENT DATE: 20190623
